FAERS Safety Report 4599805-6 (Version None)
Quarter: 2005Q1

REPORT INFORMATION
  Report Type: 
  Country: None (occurrence: None)
  Receive Date: 20050303
  Receipt Date: 20050217
  Transmission Date: 20050727
  Serious: Yes (Death, Hospitalization)
  Sender: FDA-Public Use
  Company Number: 2005S1000064

PATIENT
  Age: 38 Year
  Sex: Male
  Weight: 68.0396 kg

DRUGS (9)
  1. SORIATANE [Suspect]
     Indication: PSORIASIS
     Dosage: 10 MG; QD; PO
     Route: 048
     Dates: start: 20031023
  2. ETANERCEPT [Concomitant]
  3. METHOTREXATE [Concomitant]
  4. TEGISON [Concomitant]
  5. TAC [Concomitant]
  6. HYDREA [Concomitant]
  7. CELLCEPT [Concomitant]
  8. PSORARLENS ULTRAVIOLET RADIATION PHOTOTHERAPY [Concomitant]
  9. AMEVIVE [Concomitant]

REACTIONS (3)
  - HEPATIC FAILURE [None]
  - INFLUENZA LIKE ILLNESS [None]
  - PERITONITIS [None]
